FAERS Safety Report 6666290-X (Version None)
Quarter: 2010Q1

REPORT INFORMATION
  Report Type: 
  Country: None (occurrence: None)
  Receive Date: 20100331
  Receipt Date: 20100318
  Transmission Date: 20100710
  Serious: Yes (Hospitalization)
  Sender: FDA-Public Use
  Company Number: A-US2007-16183

PATIENT
  Age: 61 Year
  Sex: Female

DRUGS (3)
  1. TRACLEER [Suspect]
     Indication: PULMONARY ARTERIAL HYPERTENSION
     Dosage: 125 MG, BID, ORAL; ORAL; 62.5 MG, BID, ORAL
     Route: 048
     Dates: start: 20090622, end: 20090701
  2. TRACLEER [Suspect]
     Indication: PULMONARY ARTERIAL HYPERTENSION
     Dosage: 125 MG, BID, ORAL; ORAL; 62.5 MG, BID, ORAL
     Route: 048
     Dates: start: 20090701, end: 20100223
  3. TRACLEER [Suspect]
     Indication: PULMONARY ARTERIAL HYPERTENSION
     Dosage: 125 MG, BID, ORAL; ORAL; 62.5 MG, BID, ORAL
     Route: 048
     Dates: start: 20050916

REACTIONS (4)
  - ASPARTATE AMINOTRANSFERASE INCREASED [None]
  - CHOLECYSTECTOMY [None]
  - COUGH [None]
  - SINUSITIS [None]
